FAERS Safety Report 16576195 (Version 1)
Quarter: 2019Q3

REPORT INFORMATION
  Report Type: Spontaneous
  Country: BR (occurrence: BR)
  Receive Date: 20190716
  Receipt Date: 20190716
  Transmission Date: 20191004
  Serious: Yes (Hospitalization, Other)
  Sender: FDA-Public Use
  Company Number: BR-AMGEN-BRASP2019111143

PATIENT
  Age: 82 Year
  Sex: Female
  Weight: 47 kg

DRUGS (10)
  1. PROLIA [Suspect]
     Active Substance: DENOSUMAB
     Indication: OSTEOPOROSIS
     Dosage: 60 MILLIGRAM, Q6MO
     Route: 058
  2. XARELTO [Concomitant]
     Active Substance: RIVAROXABAN
     Dosage: 500 MILLIGRAM, UNK
  3. SERTRALINE [Concomitant]
     Active Substance: SERTRALINE HYDROCHLORIDE
     Dosage: 1 MILLIGRAM, QD
  4. SIMVASTATIN. [Concomitant]
     Active Substance: SIMVASTATIN
     Dosage: 10 MILLIGRAM, QD
  5. CALCIUM CARBONATE. [Concomitant]
     Active Substance: CALCIUM CARBONATE
     Dosage: 120 MILLIGRAM, QD
  6. HYDROCHLOROTHIAZIDE. [Concomitant]
     Active Substance: HYDROCHLOROTHIAZIDE
     Dosage: UNK, QD
  7. ATENOLOL. [Concomitant]
     Active Substance: ATENOLOL
     Indication: BLOOD PRESSURE ABNORMAL
     Dosage: 25 MILLIGRAM, QD
  8. NEUTROFER [Concomitant]
     Active Substance: FERROUS BISGLYCINATE
     Dosage: 300 MILLIGRAM, BID
  9. ADDERA D3 [Concomitant]
     Active Substance: CHOLECALCIFEROL
     Dosage: 7000 IU, QWK
  10. COLCHICINE. [Concomitant]
     Active Substance: COLCHICINE
     Dosage: 0.5 MILLIGRAM, QD

REACTIONS (8)
  - Arrhythmia [Recovering/Resolving]
  - Decreased appetite [Recovering/Resolving]
  - Urinary tract infection [Recovering/Resolving]
  - Pain [Recovering/Resolving]
  - Apathy [Recovering/Resolving]
  - Dyspnoea [Recovering/Resolving]
  - Decreased immune responsiveness [Recovering/Resolving]
  - Back pain [Recovering/Resolving]
